FAERS Safety Report 6655859-4 (Version None)
Quarter: 2010Q1

REPORT INFORMATION
  Report Type: 
  Country: None (occurrence: None)
  Receive Date: 20100317
  Receipt Date: 20091216
  Transmission Date: 20100710
  Serious: No
  Sender: FDA-Public Use
  Company Number: DSA_42213_2009

PATIENT
  Sex: Female

DRUGS (8)
  1. XENAZINE [Suspect]
     Indication: HUNTINGTON'S CHOREA
     Dosage: (56 MG ORAL), (12.5 MG TID ORAL)
     Route: 048
     Dates: start: 20090101, end: 20090101
  2. XENAZINE [Suspect]
     Indication: HUNTINGTON'S CHOREA
     Dosage: (56 MG ORAL), (12.5 MG TID ORAL)
     Route: 048
     Dates: start: 20090601
  3. ABILIFY [Concomitant]
  4. CELEXA [Concomitant]
  5. AMANTADINE HCL [Concomitant]
  6. COLACE [Concomitant]
  7. AMOXICILLIN [Concomitant]
  8. HALDOL [Concomitant]

REACTIONS (2)
  - POLLAKIURIA [None]
  - SLEEP DISORDER [None]
